FAERS Safety Report 23164264 (Version 1)
Quarter: 2023Q4

REPORT INFORMATION
  Report Type: Spontaneous
  Country: NL (occurrence: NL)
  Receive Date: 20231109
  Receipt Date: 20231109
  Transmission Date: 20240109
  Serious: Yes (Life-Threatening, Hospitalization, Other)
  Sender: FDA-Public Use
  Company Number: NL-Accord-388706

PATIENT
  Sex: Male

DRUGS (4)
  1. METHOTREXATE [Suspect]
     Active Substance: METHOTREXATE
  2. METOPROLOL [Suspect]
     Active Substance: METOPROLOL
     Dosage: 1 BOX
  3. DAPSONE [Suspect]
     Active Substance: DAPSONE
     Dosage: 1 VIAL WITH +GT; 200 TABLETS
  4. FERROUS FUMARATE [Suspect]
     Active Substance: FERROUS FUMARATE
     Dosage: 2 BOXES

REACTIONS (2)
  - Suicide attempt [Unknown]
  - Toxicity to various agents [Recovered/Resolved]
